FAERS Safety Report 9997774 (Version 2)
Quarter: 2014Q2

REPORT INFORMATION
  Report Type: Spontaneous
  Country: US (occurrence: US)
  Receive Date: 20140311
  Receipt Date: 20140407
  Transmission Date: 20141212
  Serious: No
  Sender: FDA-Public Use
  Company Number: US-PFIZER INC-2014067645

PATIENT
  Age: 65 Year
  Sex: Male
  Weight: 73.92 kg

DRUGS (2)
  1. VIAGRA [Suspect]
     Indication: ERECTILE DYSFUNCTION
     Dosage: UNK
     Dates: start: 201402
  2. OXYCODONE [Concomitant]
     Indication: PROCEDURAL PAIN
     Dosage: UNK

REACTIONS (1)
  - Spontaneous penile erection [Unknown]
